FAERS Safety Report 15170180 (Version 3)
Quarter: 2018Q4

REPORT INFORMATION
  Report Type: Spontaneous
  Country: US (occurrence: US)
  Receive Date: 20180720
  Receipt Date: 20181002
  Transmission Date: 20190204
  Serious: Yes (Hospitalization)
  Sender: FDA-Public Use
  Company Number: US-PFIZER INC-2018293902

PATIENT
  Age: 60 Year
  Sex: Female

DRUGS (1)
  1. XELJANZ [Suspect]
     Active Substance: TOFACITINIB CITRATE
     Dosage: 5 MG, UNK
     Dates: start: 201806

REACTIONS (5)
  - Blood pressure increased [Unknown]
  - Headache [Unknown]
  - Sinusitis [Unknown]
  - Hyperhidrosis [Unknown]
  - Panic attack [Unknown]
